FAERS Safety Report 10567914 (Version 1)
Quarter: 2014Q4

REPORT INFORMATION
  Report Type: Spontaneous
  Country: IT (occurrence: IT)
  Receive Date: 20141106
  Receipt Date: 20141106
  Transmission Date: 20150529
  Serious: Yes (Hospitalization)
  Sender: FDA-Public Use
  Company Number: IT-TEVA-519064ISR

PATIENT
  Age: 68 Year
  Sex: Female

DRUGS (5)
  1. SEREUPIN 20 MG/10 ML SOSPENSIONE ORALE [Suspect]
     Active Substance: PAROXETINE\PAROXETINE HYDROCHLORIDE
     Indication: DEPRESSION
     Route: 048
     Dates: start: 20140922, end: 20140922
  2. HALDOL [Concomitant]
     Active Substance: HALOPERIDOL
     Indication: ABNORMAL BEHAVIOUR
     Dosage: 10 MILLIGRAM DAILY;
     Route: 048
  3. CARBOLITHIUM 300 MG [Suspect]
     Active Substance: LITHIUM CARBONATE
     Indication: DEPRESSION
     Route: 048
     Dates: start: 20140922, end: 20140922
  4. PROTADIEN 75 MG [Concomitant]
     Indication: DEPRESSION
     Dosage: 150 MILLIGRAM DAILY;
  5. SERENASE [Suspect]
     Active Substance: HALOPERIDOL
     Indication: DEPRESSION
     Route: 048
     Dates: start: 20140922, end: 20140922

REACTIONS (15)
  - Coma [Not Recovered/Not Resolved]
  - Lymphocyte count decreased [None]
  - Blood potassium decreased [None]
  - Antipsychotic drug level increased [None]
  - Eosinophil count decreased [None]
  - Gamma-glutamyltransferase increased [None]
  - White blood cell count increased [None]
  - Drug abuse [Not Recovered/Not Resolved]
  - Neutrophil count increased [None]
  - Cognitive disorder [Not Recovered/Not Resolved]
  - Heart rate increased [None]
  - Toxicity to various agents [Not Recovered/Not Resolved]
  - Blood lactate dehydrogenase increased [None]
  - Blood glucose increased [None]
  - Blood alkaline phosphatase increased [None]

NARRATIVE: CASE EVENT DATE: 20140922
